FAERS Safety Report 7647137-1 (Version None)
Quarter: 2011Q3

REPORT INFORMATION
  Report Type: 
  Country: None (occurrence: None)
  Receive Date: 20110729
  Receipt Date: 20110729
  Transmission Date: 20111222
  Serious: Yes (Other)
  Sender: FDA-Public Use
  Company Number: None

PATIENT
  Age: 36 Year
  Sex: Male
  Weight: 65.6 kg

DRUGS (12)
  1. ACYCLOVIR [Concomitant]
  2. BACTRIM DS [Concomitant]
  3. CALCIUM ACETATE [Concomitant]
  4. LEVAQUIN [Suspect]
     Indication: BACTERIAL INFECTION
     Dosage: 750MG DAILY PO
     Route: 048
     Dates: start: 20110511, end: 20110606
  5. LEVAQUIN [Suspect]
     Indication: INFECTION PROPHYLAXIS
     Dosage: 750MG DAILY PO
     Route: 048
     Dates: start: 20110511, end: 20110606
  6. NEXIUM [Concomitant]
  7. CYCLOSPORINE [Concomitant]
  8. MAGNESIUM [Concomitant]
  9. MULTI-VITAMIN [Concomitant]
  10. FLUCONAZOLE [Concomitant]
  11. URSODIOL [Concomitant]
  12. SIROLIMUS [Concomitant]

REACTIONS (2)
  - ARTHRALGIA [None]
  - JOINT RANGE OF MOTION DECREASED [None]
